FAERS Safety Report 11565148 (Version 1)
Quarter: 2015Q3

REPORT INFORMATION
  Report Type: Spontaneous
  Country: US (occurrence: US)
  Receive Date: 20150916
  Receipt Date: 20150916
  Transmission Date: 20151125
  Serious: No
  Sender: FDA-Public Use
  Company Number: US-ELI_LILLY_AND_COMPANY-US200904003467

PATIENT
  Age: 77 Year
  Sex: Female

DRUGS (2)
  1. FOSAMAX [Concomitant]
     Active Substance: ALENDRONATE SODIUM
  2. FORTEO [Suspect]
     Active Substance: TERIPARATIDE

REACTIONS (8)
  - Arthritis [Not Recovered/Not Resolved]
  - Sciatica [Not Recovered/Not Resolved]
  - Bone density decreased [Unknown]
  - Scoliosis [Not Recovered/Not Resolved]
  - Bone pain [Unknown]
  - Carcinoembryonic antigen increased [Not Recovered/Not Resolved]
  - Visual impairment [Unknown]
  - Anxiety [Unknown]

NARRATIVE: CASE EVENT DATE: 2009
